FAERS Safety Report 25522184 (Version 3)
Quarter: 2025Q3

REPORT INFORMATION
  Report Type: Spontaneous
  Country: EU (occurrence: EU)
  Receive Date: 20250707
  Receipt Date: 20250810
  Transmission Date: 20251020
  Serious: Yes (Other)
  Sender: ALEXION PHARMACEUTICALS
  Company Number: EU-AstraZeneca-CH-00903507A

PATIENT
  Age: 69 Year
  Sex: Male

DRUGS (3)
  1. FASENRA [Suspect]
     Active Substance: BENRALIZUMAB
     Indication: Asthma
     Dosage: 30 MILLIGRAM, Q8W
     Dates: start: 2021, end: 202503
  2. FASENRA [Suspect]
     Active Substance: BENRALIZUMAB
  3. TEZEPELUMAB [Concomitant]
     Active Substance: TEZEPELUMAB
     Route: 065

REACTIONS (6)
  - Respiratory failure [Unknown]
  - Cough [Unknown]
  - Dyspnoea [Unknown]
  - Dyspnoea paroxysmal nocturnal [Unknown]
  - Forced expiratory volume decreased [Unknown]
  - Oxygen saturation [Unknown]

NARRATIVE: CASE EVENT DATE: 20230101
